FAERS Safety Report 6173386-8 (Version None)
Quarter: 2009Q2

REPORT INFORMATION
  Report Type: 
  Country: None (occurrence: None)
  Receive Date: 20090428
  Receipt Date: 20090421
  Transmission Date: 20091009
  Serious: Yes (Life-Threatening, Hospitalization)
  Sender: FDA-Public Use
  Company Number: GXKR2009GB04896

PATIENT
  Age: 47 Year
  Sex: Female
  Weight: 50 kg

DRUGS (9)
  1. AZITHROMYCIN [Suspect]
     Indication: INFECTION PROPHYLAXIS
     Dosage: 500 MG, ORAL
     Route: 048
     Dates: start: 20090323, end: 20090323
  2. ADCAL-D3 (CALCIUM CARBONATE, COLECALCIFEROL) [Concomitant]
  3. FLUCONAZOLE [Concomitant]
  4. FLUTICASONE PROPIONATE [Concomitant]
  5. FUSIDIC ACID [Concomitant]
  6. LEVOTHYROXINE SODIUM [Concomitant]
  7. NITROFURANTOIN [Concomitant]
  8. SALBUTAMOL (SALBUTAMOL) [Concomitant]
  9. TRIMETHOPRIM [Concomitant]

REACTIONS (3)
  - DYSPNOEA [None]
  - FACIAL PARESIS [None]
  - PANCREATITIS [None]
